FAERS Safety Report 9127609 (Version 1)
Quarter: 2013Q1

REPORT INFORMATION
  Report Type: Spontaneous
  Country: US (occurrence: US)
  Receive Date: 20130228
  Receipt Date: 20130228
  Transmission Date: 20140127
  Serious: No
  Sender: FDA-Public Use
  Company Number: US-GLAXOSMITHKLINE-A0987569A

PATIENT
  Sex: Female

DRUGS (3)
  1. LAMICTAL [Suspect]
     Indication: PRODUCT USED FOR UNKNOWN INDICATION
     Route: 065
     Dates: start: 20120607
  2. CYMBALTA [Concomitant]
  3. TRAZODONE [Concomitant]

REACTIONS (3)
  - Dyspnoea [Unknown]
  - Rash [Unknown]
  - Malaise [Unknown]
